FAERS Safety Report 20720641 (Version 8)
Quarter: 2023Q1

REPORT INFORMATION
  Report Type: Report from Study
  Country: ES (occurrence: ES)
  Receive Date: 20220418
  Receipt Date: 20230201
  Transmission Date: 20230418
  Serious: Yes (Hospitalization, Other)
  Sender: FDA-Public Use
  Company Number: ES-009507513-2203ESP008158

PATIENT
  Age: 56 Year
  Sex: Male
  Weight: 68.7 kg

DRUGS (21)
  1. GEMCITABINE HYDROCHLORIDE [Suspect]
     Active Substance: GEMCITABINE HYDROCHLORIDE
     Indication: Ductal adenocarcinoma of pancreas
     Dosage: TWICE EVERY 3 WEEKS (2Q3W)
     Route: 042
     Dates: start: 20220224, end: 20220303
  2. GEMCITABINE HYDROCHLORIDE [Suspect]
     Active Substance: GEMCITABINE HYDROCHLORIDE
     Dosage: TWICE EVERY 3 WEEKS (2Q3W)
     Route: 042
     Dates: start: 20220224, end: 20220705
  3. PACLITAXEL [Suspect]
     Active Substance: PACLITAXEL
     Indication: Ductal adenocarcinoma of pancreas
     Dosage: TWICE EVERY 3 WEEKS (2Q3W)
     Route: 042
     Dates: start: 20220224, end: 20220303
  4. PACLITAXEL [Suspect]
     Active Substance: PACLITAXEL
     Dosage: TWICE EVERY 3 WEEKS (2Q3W)
     Route: 042
     Dates: start: 20220224, end: 20220705
  5. PEMBROLIZUMAB [Suspect]
     Active Substance: PEMBROLIZUMAB
     Indication: Ductal adenocarcinoma of pancreas
     Dosage: TWICE EVERY 3 WEEKS (2Q3W)
     Route: 042
     Dates: start: 20220224, end: 20220224
  6. PEMBROLIZUMAB [Suspect]
     Active Substance: PEMBROLIZUMAB
     Dosage: 200 MILLIGRAM, Q3W
     Route: 042
     Dates: start: 20220224, end: 20220705
  7. METAMIZOL [Concomitant]
     Active Substance: METAMIZOLE SODIUM
     Dosage: UNK
     Dates: start: 20220227, end: 20220227
  8. PIPERACILLIN SODIUM\TAZOBACTAM SODIUM [Concomitant]
     Active Substance: PIPERACILLIN SODIUM\TAZOBACTAM SODIUM
     Dosage: UNK
     Dates: start: 20220305, end: 20220308
  9. LORMETAZEPAM [Concomitant]
     Active Substance: LORMETAZEPAM
     Dosage: UNK
     Dates: start: 20220306, end: 20220308
  10. DEXCHLORPHENIRAMINE [Concomitant]
     Active Substance: DEXCHLORPHENIRAMINE
     Dosage: UNK
     Dates: start: 20220224, end: 20220303
  11. DEXCHLORPHENIRAMINE [Concomitant]
     Active Substance: DEXCHLORPHENIRAMINE
     Dosage: UNK
     Dates: start: 20220615, end: 20220622
  12. LEVOFLOXACIN [Concomitant]
     Active Substance: LEVOFLOXACIN
     Dosage: UNK
     Dates: start: 20220308, end: 20220311
  13. ONDANSETRON [Concomitant]
     Active Substance: ONDANSETRON
     Dosage: UNK
     Dates: start: 20220224, end: 20220306
  14. ONDANSETRON [Concomitant]
     Active Substance: ONDANSETRON
     Dosage: UNK
     Dates: start: 20220615, end: 20220709
  15. FAMOTIDINA [Concomitant]
     Dosage: UNK
     Dates: start: 20220306, end: 20220306
  16. PANTOPRAZOLE [Concomitant]
     Active Substance: PANTOPRAZOLE
     Dosage: UNK
     Dates: start: 20220306
  17. PANTOPRAZOLE [Concomitant]
     Active Substance: PANTOPRAZOLE
     Dosage: UNK
     Dates: start: 20220309
  18. HIBOR [Concomitant]
     Dosage: UNK
     Dates: start: 20220306, end: 20220308
  19. ACETAMINOPHEN [Concomitant]
     Active Substance: ACETAMINOPHEN
     Dosage: UNK
     Dates: start: 20220226, end: 20220307
  20. PUNTUAL [Concomitant]
     Dosage: UNK
     Dates: start: 20220306, end: 20220309
  21. LOPERAMIDE [Concomitant]
     Active Substance: LOPERAMIDE
     Dosage: UNK
     Dates: start: 20220620, end: 20220712

REACTIONS (5)
  - Cytokine release syndrome [Recovering/Resolving]
  - Alanine aminotransferase increased [Recovered/Resolved]
  - Condition aggravated [Recovered/Resolved]
  - Aspartate aminotransferase increased [Recovered/Resolved]
  - Immune-mediated enterocolitis [Recovered/Resolved]

NARRATIVE: CASE EVENT DATE: 20220305
